FAERS Safety Report 12893614 (Version 3)
Quarter: 2016Q4

REPORT INFORMATION
  Report Type: Report from Study
  Country: JP (occurrence: JP)
  Receive Date: 20161028
  Receipt Date: 20161209
  Transmission Date: 20170207
  Serious: Yes (Hospitalization)
  Sender: FDA-Public Use
  Company Number: JP-VIFOR (INTERNATIONAL) INC.-VIT-2016-06879

PATIENT
  Age: 82 Year
  Sex: Male
  Weight: 60 kg

DRUGS (8)
  1. FESIN [Concomitant]
     Active Substance: IRON SUCROSE
     Route: 042
     Dates: start: 20160330, end: 20160429
  2. CALCIUM CARBONATE. [Concomitant]
     Active Substance: CALCIUM CARBONATE
     Indication: HYPERPHOSPHATAEMIA
     Route: 048
  3. AZILVA [Concomitant]
     Active Substance: AZILSARTAN KAMEDOXOMIL
     Route: 048
  4. VELPHORO [Suspect]
     Active Substance: FERRIC OXYHYDROXIDE
     Indication: HYPERPHOSPHATAEMIA
     Route: 048
     Dates: start: 20160427, end: 20160819
  5. PARIET [Concomitant]
     Active Substance: RABEPRAZOLE SODIUM
     Indication: GASTRIC MUCOSAL LESION
     Route: 048
  6. ACETYLSALICYLIC ACID [Concomitant]
     Active Substance: ASPIRIN
     Route: 048
  7. ADALAT [Concomitant]
     Active Substance: NIFEDIPINE
     Route: 048
  8. NESP [Concomitant]
     Active Substance: DARBEPOETIN ALFA
     Route: 042

REACTIONS (4)
  - Stress cardiomyopathy [Recovering/Resolving]
  - Abdominal discomfort [Recovering/Resolving]
  - Acute coronary syndrome [Recovering/Resolving]
  - Decreased appetite [Recovering/Resolving]

NARRATIVE: CASE EVENT DATE: 201606
